FAERS Safety Report 15647910 (Version 1)
Quarter: 2018Q4

REPORT INFORMATION
  Report Type: Spontaneous
  Country: US (occurrence: US)
  Receive Date: 20181122
  Receipt Date: 20181122
  Transmission Date: 20190205
  Serious: No
  Sender: FDA-Public Use
  Company Number: US-SA-2018SA316553

PATIENT
  Age: 82 Year
  Sex: Female
  Weight: 114 kg

DRUGS (10)
  1. LACTULOSE. [Concomitant]
     Active Substance: LACTULOSE
  2. ALLOPURINOL. [Concomitant]
     Active Substance: ALLOPURINOL
  3. CLOPIDOGREL [Concomitant]
     Active Substance: CLOPIDOGREL BISULFATE
  4. HYDRALAZINE [Concomitant]
     Active Substance: HYDRALAZINE HYDROCHLORIDE
  5. VALSARTAN. [Concomitant]
     Active Substance: VALSARTAN
  6. MONTELUKAST [Concomitant]
     Active Substance: MONTELUKAST SODIUM
  7. SPIRONOLACTONE. [Concomitant]
     Active Substance: SPIRONOLACTONE
  8. PRALUENT [Suspect]
     Active Substance: ALIROCUMAB
     Indication: HYPERCHOLESTEROLAEMIA
     Dosage: 75 MG, QOW
     Route: 058
     Dates: start: 20181105
  9. ALBUTEROL;IPRATROPIUM [Concomitant]
  10. ALPRAZOLAM. [Concomitant]
     Active Substance: ALPRAZOLAM

REACTIONS (1)
  - Injection site pruritus [Recovered/Resolved]

NARRATIVE: CASE EVENT DATE: 20181105
